FAERS Safety Report 5078000-0 (Version None)
Quarter: 2006Q3

REPORT INFORMATION
  Report Type: 
  Country: None (occurrence: None)
  Receive Date: 20060811
  Receipt Date: 20060731
  Transmission Date: 20061208
  Serious: Yes (Life-Threatening)
  Sender: FDA-Public Use
  Company Number: AU-JNJFOC-20060801217

PATIENT
  Sex: Female
  Weight: 60 kg

DRUGS (1)
  1. TRAMADOL HCL [Suspect]
     Indication: PAIN
     Route: 065
     Dates: start: 20051101, end: 20051102

REACTIONS (2)
  - DYSTONIA [None]
  - OPISTHOTONUS [None]
